FAERS Safety Report 7122954-5 (Version None)
Quarter: 2010Q4

REPORT INFORMATION
  Report Type: 
  Country: None (occurrence: None)
  Receive Date: 20101124
  Receipt Date: 20101124
  Transmission Date: 20110411
  Serious: Yes (Other)
  Sender: FDA-Public Use
  Company Number: BR-ABBOTT-10P-020-0682218-00

PATIENT
  Sex: Male
  Weight: 77 kg

DRUGS (7)
  1. HUMIRA [Suspect]
     Indication: RHEUMATOID ARTHRITIS
     Route: 058
     Dates: start: 20100901
  2. DOMPERIDONE [Concomitant]
     Indication: GASTRIC DISORDER
  3. PANTOPRAZOLE [Concomitant]
     Indication: GASTROINTESTINAL DISORDER
  4. SERTRALINE HYDROCHLORIDE [Concomitant]
     Indication: AFFECTIVE DISORDER
  5. SERTRALINE HYDROCHLORIDE [Concomitant]
     Indication: PANIC DISORDER
  6. LOSARTAN [Concomitant]
     Indication: RENAL DISORDER
  7. ALLOPURINOL [Concomitant]
     Indication: BLOOD URIC ACID ABNORMAL

REACTIONS (5)
  - DRY EYE [None]
  - DRY SKIN [None]
  - LIP DRY [None]
  - PRURITUS GENERALISED [None]
  - RASH MACULAR [None]
